FAERS Safety Report 20390223 (Version 1)
Quarter: 2022Q1

REPORT INFORMATION
  Report Type: Spontaneous
  Country: US (occurrence: US)
  Receive Date: 20220128
  Receipt Date: 20220128
  Transmission Date: 20220423
  Serious: No
  Sender: FDA-Public Use
  Company Number: US-ALLERGAN-2125216US

PATIENT
  Sex: Female

DRUGS (2)
  1. BOTOX [Suspect]
     Active Substance: ONABOTULINUMTOXINA
     Indication: Hypertonic bladder
     Dosage: 100 UNITS, SINGLE
     Dates: start: 20210629, end: 20210629
  2. BACTRIM DS [Suspect]
     Active Substance: SULFAMETHOXAZOLE\TRIMETHOPRIM
     Indication: Cystoscopy
     Dosage: UNK

REACTIONS (6)
  - Lip swelling [Recovering/Resolving]
  - Vulvovaginal pruritus [Recovering/Resolving]
  - Pharyngeal swelling [Recovering/Resolving]
  - Dysphagia [Recovering/Resolving]
  - Rash [Recovering/Resolving]
  - Dysuria [Recovering/Resolving]

NARRATIVE: CASE EVENT DATE: 20210630
